FAERS Safety Report 6843922-4 (Version None)
Quarter: 2010Q3

REPORT INFORMATION
  Report Type: 
  Country: None (occurrence: None)
  Receive Date: 20100714
  Receipt Date: 20100714
  Transmission Date: 20110219
  Serious: Yes (Hospitalization)
  Sender: FDA-Public Use
  Company Number: None

PATIENT
  Age: 63 Year
  Sex: Male
  Weight: 84.41 kg

DRUGS (1)
  1. CARBOPLATIN [Suspect]
     Indication: NON-SMALL CELL LUNG CANCER
     Dosage: 565 MG ONCE IV
     Route: 042
     Dates: start: 20091221, end: 20091221

REACTIONS (2)
  - ANAPHYLACTIC REACTION [None]
  - TACHYCARDIA [None]
